FAERS Safety Report 4635570-1 (Version None)
Quarter: 2005Q2

REPORT INFORMATION
  Report Type: 
  Country: None (occurrence: None)
  Receive Date: 20050413
  Receipt Date: 20050401
  Transmission Date: 20051028
  Serious: Yes (Hospitalization, Other)
  Sender: FDA-Public Use
  Company Number: KII-2005-0015785

PATIENT
  Age: 47 Year
  Sex: Male

DRUGS (7)
  1. OXYCONTIN [Suspect]
     Indication: PAIN
     Dosage: ORAL
     Route: 048
  2. TETRAHYDROCANNABINOL(TETRAHYDROCANNABINOL) [Suspect]
  3. AMBIEN [Suspect]
     Dosage: ORAL
     Route: 048
  4. HYDROCODONE BITARTRATE + ACETAMINOPHEN [Suspect]
     Indication: PAIN
     Dosage: ORAL
     Route: 048
  5. LISINOPRIL [Suspect]
     Dosage: ORAL
     Route: 048
  6. ATENOLOL [Suspect]
     Dosage: ORAL
     Route: 048
  7. BENZODIAZEPINE DERIVATIVES [Suspect]

REACTIONS (6)
  - AGGRESSION [None]
  - AGITATION [None]
  - CONFUSIONAL STATE [None]
  - DRUG ABUSER [None]
  - DRUG SCREEN POSITIVE [None]
  - MULTIPLE DRUG OVERDOSE [None]
